FAERS Safety Report 9866192 (Version 3)
Quarter: 2015Q1

REPORT INFORMATION
  Report Type: Spontaneous
  Country: US (occurrence: US)
  Receive Date: 20140203
  Receipt Date: 20150216
  Transmission Date: 20150721
  Serious: No
  Sender: FDA-Public Use
  Company Number: US-ALLERGAN-1317972US

PATIENT
  Sex: Female

DRUGS (6)
  1. LOTEMAX [Concomitant]
     Active Substance: LOTEPREDNOL ETABONATE
     Indication: PREOPERATIVE CARE
     Dosage: UNK
     Route: 047
     Dates: start: 201312
  2. BESIVANCE                          /06324101/ [Concomitant]
     Indication: PREOPERATIVE CARE
     Dosage: UNK
     Route: 047
     Dates: start: 201312
  3. PROLENSA [Concomitant]
     Active Substance: BROMFENAC SODIUM
     Indication: PREOPERATIVE CARE
     Dosage: UNK
     Route: 047
     Dates: start: 201312
  4. RESTASIS [Suspect]
     Active Substance: CYCLOSPORINE
     Indication: DRY EYE
     Dosage: 2 GTT, BID
     Route: 047
     Dates: start: 20131112, end: 20140117
  5. THYROID MEDICATION [Concomitant]
     Active Substance: UNSPECIFIED INGREDIENT
     Indication: HYPOTHYROIDISM
     Dosage: UNK
     Route: 048
  6. RESTASIS [Suspect]
     Active Substance: CYCLOSPORINE
     Indication: PREOPERATIVE CARE

REACTIONS (2)
  - Eye pruritus [Unknown]
  - Eye irritation [Unknown]
